FAERS Safety Report 9097177 (Version 2)
Quarter: 2013Q2

REPORT INFORMATION
  Report Type: Report from Study
  Country: BR (occurrence: BR)
  Receive Date: 20130212
  Receipt Date: 20130426
  Transmission Date: 20140414
  Serious: Yes (Other)
  Sender: FDA-Public Use
  Company Number: PHHY2013BR012630

PATIENT
  Age: 96 Year
  Sex: Female

DRUGS (4)
  1. FORASEQ [Suspect]
     Indication: ASTHMA
     Dosage: 1 DF, Q12H
  2. CITALOPRAM [Suspect]
     Indication: DEPRESSION
     Dosage: 1 DF, QD
     Route: 048
  3. QUETIAPINE [Suspect]
     Indication: DEPRESSION
     Dosage: 1 DF, QD
     Route: 048
  4. MOTILIUM ^JANSSEN-CILAG^ [Suspect]
     Indication: VOMITING
     Dosage: 1 DF (BEFORE LUNCH AND DINNER), BID
     Route: 048

REACTIONS (6)
  - Abasia [Not Recovered/Not Resolved]
  - Depression [Not Recovered/Not Resolved]
  - Osteoarthritis [Not Recovered/Not Resolved]
  - Arthropathy [Unknown]
  - Fatigue [Recovering/Resolving]
  - Capsule physical issue [Unknown]
